FAERS Safety Report 6681519-X (Version None)
Quarter: 2010Q2

REPORT INFORMATION
  Report Type: 
  Country: None (occurrence: None)
  Receive Date: 20100414
  Receipt Date: 20100402
  Transmission Date: 20101027
  Serious: Yes (Disabling)
  Sender: FDA-Public Use
  Company Number: PHHY2010GB21623

PATIENT
  Age: 63 Year
  Sex: Female

DRUGS (2)
  1. TERBINAFINE HCL [Suspect]
     Indication: ONYCHOMYCOSIS
     Dosage: 250 MG, UNK
     Route: 048
     Dates: start: 20091101, end: 20091201
  2. LEVOTHYROXINE SODIUM [Concomitant]
     Indication: HYPOTHYROIDISM
     Dosage: 50 UG, UNK
     Route: 048

REACTIONS (3)
  - AGEUSIA [None]
  - DEPRESSION [None]
  - SALIVARY HYPERSECRETION [None]
